FAERS Safety Report 25512179 (Version 8)
Quarter: 2025Q3

REPORT INFORMATION
  Report Type: Report from Study
  Country: CA (occurrence: CA)
  Receive Date: 20250703
  Receipt Date: 20250926
  Transmission Date: 20251021
  Serious: Yes (Hospitalization)
  Sender: ABBVIE
  Company Number: CA-ABBVIE-6354717

PATIENT
  Age: 55 Year
  Sex: Male

DRUGS (9)
  1. VYALEV [Suspect]
     Active Substance: FOSCARBIDOPA\FOSLEVODOPA
     Indication: Product used for unknown indication
     Route: 058
     Dates: start: 20250619
  2. VYALEV [Suspect]
     Active Substance: FOSCARBIDOPA\FOSLEVODOPA
     Route: 058
  3. VYALEV [Suspect]
     Active Substance: FOSCARBIDOPA\FOSLEVODOPA
     Route: 058
  4. AMANTADINE [Suspect]
     Active Substance: AMANTADINE
     Indication: Product used for unknown indication
     Route: 065
  5. MIRAPEX [Suspect]
     Active Substance: PRAMIPEXOLE DIHYDROCHLORIDE
     Indication: Product used for unknown indication
     Route: 065
  6. Levodopa Cardibopa [Concomitant]
     Indication: Product used for unknown indication
  7. PRAMIPEXOLE [Concomitant]
     Active Substance: PRAMIPEXOLE
     Indication: Product used for unknown indication
  8. MELATONIN [Concomitant]
     Active Substance: MELATONIN
     Indication: Product used for unknown indication
  9. ACETAMINOPHEN [Concomitant]
     Active Substance: ACETAMINOPHEN
     Indication: Product used for unknown indication

REACTIONS (28)
  - Mania [Unknown]
  - Immobile [Unknown]
  - Dyskinesia [Unknown]
  - Poor quality sleep [Unknown]
  - Panic reaction [Unknown]
  - On and off phenomenon [Recovering/Resolving]
  - Hallucination, auditory [Unknown]
  - Hallucination, visual [Unknown]
  - Daydreaming [Unknown]
  - Catheter site pain [Recovering/Resolving]
  - Depression [Unknown]
  - Product sterility issue [Unknown]
  - Dermatitis allergic [Recovered/Resolved]
  - Food allergy [Recovered/Resolved]
  - Device use error [Unknown]
  - Device physical property issue [Unknown]
  - Device dislocation [Unknown]
  - Device placement issue [Unknown]
  - Infusion site mass [Recovered/Resolved]
  - Infusion site pain [Unknown]
  - Clumsiness [Unknown]
  - Infusion site mass [Unknown]
  - Medical device discomfort [Unknown]
  - Catheter site discharge [Unknown]
  - Chemical burn [Unknown]
  - Device leakage [Unknown]
  - Catheter site irritation [Unknown]
  - Catheter site bruise [Unknown]

NARRATIVE: CASE EVENT DATE: 20250101
